FAERS Safety Report 6766205-X (Version None)
Quarter: 2010Q2

REPORT INFORMATION
  Report Type: 
  Country: None (occurrence: None)
  Receive Date: 20100611
  Receipt Date: 20100601
  Transmission Date: 20101027
  Serious: Yes (Hospitalization)
  Sender: FDA-Public Use
  Company Number: CA-ABBOTT-10P-028-0648580-00

PATIENT
  Sex: Male
  Weight: 83.99 kg

DRUGS (5)
  1. HUMIRA [Suspect]
     Indication: CROHN'S DISEASE
     Route: 058
     Dates: start: 20090901
  2. PENTASA [Concomitant]
     Indication: CROHN'S DISEASE
     Route: 048
     Dates: start: 20100101
  3. MORPHINE [Concomitant]
     Indication: PAIN
     Route: 048
  4. GRAVOL TAB [Concomitant]
     Indication: NAUSEA
     Route: 048
  5. LOSEC I.V. [Concomitant]
     Indication: GASTRIC DISORDER
     Route: 048

REACTIONS (9)
  - CROHN'S DISEASE [None]
  - DEHYDRATION [None]
  - ENTERITIS [None]
  - HYPOPHAGIA [None]
  - INTESTINAL OBSTRUCTION [None]
  - LIVER DISORDER [None]
  - LYMPHADENOPATHY [None]
  - PANCREATIC DISORDER [None]
  - SKIN ULCER [None]
